FAERS Safety Report 18501820 (Version 1)
Quarter: 2020Q4

REPORT INFORMATION
  Report Type: Spontaneous
  Country: US (occurrence: US)
  Receive Date: 20201112
  Receipt Date: 20201112
  Transmission Date: 20210114
  Serious: No
  Sender: FDA-Public Use
  Company Number: None

PATIENT
  Age: 73 Year
  Sex: Female

DRUGS (1)
  1. REVLIMID [Suspect]
     Active Substance: LENALIDOMIDE
     Indication: PLASMA CELL MYELOMA
     Route: 048
     Dates: start: 20140828, end: 20160802

REACTIONS (3)
  - Hepatic enzyme increased [None]
  - Therapy interrupted [None]
  - Thrombocytopenia [None]

NARRATIVE: CASE EVENT DATE: 20200802
